FAERS Safety Report 23609686 (Version 1)
Quarter: 2024Q1

REPORT INFORMATION
  Report Type: Spontaneous
  Country: US (occurrence: US)
  Receive Date: 20240308
  Receipt Date: 20240308
  Transmission Date: 20240410
  Serious: Yes (Hospitalization, Other)
  Sender: FDA-Public Use
  Company Number: US-BIOGEN-2024BI01253331

PATIENT
  Sex: Female

DRUGS (1)
  1. TYSABRI [Suspect]
     Active Substance: NATALIZUMAB
     Indication: Multiple sclerosis
     Route: 050
     Dates: start: 20231030

REACTIONS (7)
  - Infection [Not Recovered/Not Resolved]
  - Brain injury [Unknown]
  - Diverticulum [Unknown]
  - White blood cell count abnormal [Unknown]
  - Pain [Unknown]
  - Hypoacusis [Unknown]
  - Decreased immune responsiveness [Unknown]
